FAERS Safety Report 14340499 (Version 1)
Quarter: 2018Q1

REPORT INFORMATION
  Report Type: Report from Study
  Country: JP (occurrence: JP)
  Receive Date: 20180101
  Receipt Date: 20180101
  Transmission Date: 20180509
  Serious: Yes (Death, Other)
  Sender: FDA-Public Use
  Company Number: JP-ROCHE-2045880

PATIENT

DRUGS (4)
  1. TRASTUZUMAB. [Suspect]
     Active Substance: TRASTUZUMAB
     Indication: HER-2 POSITIVE BREAST CANCER
     Route: 065
  2. ERIBULIN MESILATE [Suspect]
     Active Substance: ERIBULIN
     Indication: BREAST CANCER METASTATIC
     Route: 042
  3. ERIBULIN MESILATE [Suspect]
     Active Substance: ERIBULIN
     Route: 042
  4. ERIBULIN MESILATE [Suspect]
     Active Substance: ERIBULIN
     Route: 042

REACTIONS (24)
  - Alopecia [Unknown]
  - Interstitial lung disease [Fatal]
  - Tumour lysis syndrome [Fatal]
  - Disseminated intravascular coagulation [Fatal]
  - Neuropathy peripheral [Unknown]
  - Nausea [Unknown]
  - Neutropenia [Unknown]
  - Decreased appetite [Unknown]
  - Metastases to liver [Fatal]
  - Sepsis [Fatal]
  - Stomatitis [Unknown]
  - Leukopenia [Unknown]
  - Pyrexia [Unknown]
  - Dysgeusia [Unknown]
  - C-reactive protein increased [Unknown]
  - Pneumonia [Fatal]
  - Lymphopenia [Unknown]
  - Thrombocytopenia [Unknown]
  - Alanine aminotransferase increased [Unknown]
  - Pulmonary haemorrhage [Fatal]
  - Febrile neutropenia [Unknown]
  - Malaise [Unknown]
  - Anaemia [Unknown]
  - Aspartate aminotransferase increased [Unknown]
